FAERS Safety Report 6377440-7 (Version None)
Quarter: 2009Q3

REPORT INFORMATION
  Report Type: 
  Country: None (occurrence: None)
  Receive Date: 20090925
  Receipt Date: 20090915
  Transmission Date: 20100115
  Serious: Yes (Hospitalization)
  Sender: FDA-Public Use
  Company Number: ES-ELI_LILLY_AND_COMPANY-ES200909000363

PATIENT
  Age: 80 Year
  Sex: Female

DRUGS (8)
  1. FORTEO [Suspect]
     Indication: OSTEOPOROSIS
     Dosage: 20 UG, UNKNOWN
     Route: 058
     Dates: start: 20080101, end: 20090829
  2. ORFIDAL [Concomitant]
  3. CIPRALEX [Concomitant]
  4. SEDURAL [Concomitant]
  5. FLUMIL /00082801/ [Concomitant]
  6. CALCIUM [Concomitant]
  7. XUMADOL [Concomitant]
  8. SINTROM [Concomitant]

REACTIONS (2)
  - BLOOD GLUCOSE INCREASED [None]
  - MYOCARDIAL INFARCTION [None]
